FAERS Safety Report 8385252-8 (Version None)
Quarter: 2012Q2

REPORT INFORMATION
  Report Type: 
  Country: None (occurrence: None)
  Receive Date: 20120525
  Receipt Date: 20120517
  Transmission Date: 20120825
  Serious: No
  Sender: FDA-Public Use
  Company Number: US-BIOGENIDEC-2012BI009617

PATIENT
  Age: 36 Year
  Sex: Female

DRUGS (3)
  1. TYSABRI [Suspect]
     Indication: MULTIPLE SCLEROSIS
     Route: 042
     Dates: start: 20120119
  2. AVONEX [Concomitant]
     Indication: SINUSITIS
     Route: 030
     Dates: start: 20110415
  3. AVONEX [Concomitant]
     Indication: STAPHYLOCOCCAL INFECTION
     Route: 030
     Dates: start: 20110415

REACTIONS (12)
  - RASH PAPULAR [None]
  - HEADACHE [None]
  - STAPHYLOCOCCAL INFECTION [None]
  - MIGRAINE [None]
  - MUSCLE SPASMS [None]
  - APHAGIA [None]
  - PRURITUS GENERALISED [None]
  - SINUSITIS [None]
  - VOMITING [None]
  - CANDIDIASIS [None]
  - PYREXIA [None]
  - NAUSEA [None]
